FAERS Safety Report 9087882 (Version 1)
Quarter: 2013Q1

REPORT INFORMATION
  Report Type: Report from Study
  Country: US (occurrence: US)
  Receive Date: 20130130
  Receipt Date: 20130130
  Transmission Date: 20140127
  Serious: No
  Sender: FDA-Public Use
  Company Number: US-ABBOTT-12P-163-0979952-00

PATIENT
  Age: 49 Year
  Sex: Female
  Weight: 133.02 kg

DRUGS (16)
  1. HUMIRA [Suspect]
     Dates: start: 20120907
  2. FORTEO [Concomitant]
     Indication: PAIN
  3. AMITIZA [Concomitant]
     Indication: CONSTIPATION
  4. LACTULOSE [Concomitant]
     Indication: CONSTIPATION
  5. CYMBALTA [Concomitant]
     Indication: NERVOUS SYSTEM DISORDER
  6. CYMBALTA [Concomitant]
     Indication: ANXIETY
  7. RENEXA [Concomitant]
     Indication: MYOCARDIAL INFARCTION
  8. ISOSORBIDE [Concomitant]
     Indication: ANGINA PECTORIS
  9. ASPIRIN [Concomitant]
     Indication: CARDIAC DISORDER
  10. PLAVIX [Concomitant]
     Indication: CARDIAC DISORDER
  11. TRAZODONE [Concomitant]
     Indication: ANXIETY
  12. LORAZEPAM [Concomitant]
     Indication: NERVOUS SYSTEM DISORDER
  13. LIPITOR [Concomitant]
     Indication: BLOOD CHOLESTEROL INCREASED
  14. LOSARTAN POTASSICO [Concomitant]
     Indication: HYPERTENSION
  15. SPIRONOLACTONE [Concomitant]
     Indication: FLUID RETENTION
  16. TORSEMIDE [Concomitant]
     Indication: HYPERTENSION

REACTIONS (6)
  - Movement disorder [Not Recovered/Not Resolved]
  - Pain [Not Recovered/Not Resolved]
  - Sensory loss [Not Recovered/Not Resolved]
  - Headache [Not Recovered/Not Resolved]
  - Sinus disorder [Not Recovered/Not Resolved]
  - Gait disturbance [Not Recovered/Not Resolved]
